FAERS Safety Report 7287340-6 (Version None)
Quarter: 2011Q1

REPORT INFORMATION
  Report Type: 
  Country: None (occurrence: None)
  Receive Date: 20110207
  Receipt Date: 20110207
  Transmission Date: 20110831
  Serious: Yes (Life-Threatening, Hospitalization)
  Sender: FDA-Public Use
  Company Number: None

PATIENT
  Age: 57 Year
  Sex: Female
  Weight: 70.3075 kg

DRUGS (8)
  1. EFFEXOR XR [Concomitant]
  2. PERCOCET [Concomitant]
  3. SINGULAIR [Concomitant]
  4. ULTRAM [Concomitant]
  5. IBUPROFEN [Concomitant]
  6. ADVAIR HFA [Concomitant]
  7. ALBUTEROL INHALER [Concomitant]
  8. LYRICA [Suspect]
     Indication: FIBROMYALGIA
     Dosage: 50MG 3 TIMES DAILY PO
     Route: 048
     Dates: start: 20100303, end: 20100605

REACTIONS (4)
  - SUICIDAL IDEATION [None]
  - SUICIDE ATTEMPT [None]
  - CONDITION AGGRAVATED [None]
  - DEPRESSION [None]
